FAERS Safety Report 6185287-X (Version None)
Quarter: 2009Q2

REPORT INFORMATION
  Report Type: 
  Country: None (occurrence: None)
  Receive Date: 20090511
  Receipt Date: 20090506
  Transmission Date: 20091009
  Serious: Yes (Death, Hospitalization, Other)
  Sender: FDA-Public Use
  Company Number: DE-ROCHE-602423

PATIENT
  Sex: Male
  Weight: 70 kg

DRUGS (2)
  1. XELODA [Suspect]
     Indication: SIGNET-RING CELL CARCINOMA
     Dosage: LAST DOSE PRIOR TO THE EVENT: 4 MAY 2008
     Route: 042
     Dates: start: 20070701
  2. XELODA [Suspect]
     Route: 048
     Dates: end: 20081001

REACTIONS (8)
  - BLINDNESS [None]
  - DEATH [None]
  - HEADACHE [None]
  - HYDRONEPHROSIS [None]
  - LACRIMATION INCREASED [None]
  - METASTASES TO MENINGES [None]
  - PALMAR-PLANTAR ERYTHRODYSAESTHESIA SYNDROME [None]
  - SUBARACHNOID HAEMORRHAGE [None]
